FAERS Safety Report 9947206 (Version 1)
Quarter: 2014Q1

REPORT INFORMATION
  Report Type: Report from Study
  Country: US (occurrence: US)
  Receive Date: 20140303
  Receipt Date: 20140303
  Transmission Date: 20141002
  Serious: No
  Sender: FDA-Public Use
  Company Number: US-ABBVIE-13P-163-1062516-00

PATIENT
  Age: 51 Year
  Sex: Female

DRUGS (7)
  1. HUMIRA [Suspect]
     Indication: PRODUCT USED FOR UNKNOWN INDICATION
     Route: 058
     Dates: start: 201201
  2. GLYBURIDE [Concomitant]
     Indication: DIABETES MELLITUS
     Dosage: 1 IN AM + 1 IN PM
  3. B12 [Concomitant]
     Indication: VITAMIN B12 DEFICIENCY
     Dosage: ONCE A MONTH
     Route: 050
  4. METFORMIN [Concomitant]
     Indication: DIABETES MELLITUS
  5. SYNTHROID [Concomitant]
     Indication: THYROID DISORDER
  6. FORADIL [Concomitant]
     Indication: ASTHMA
     Route: 055
  7. PROVERA [Concomitant]
     Indication: ASTHMA
     Route: 055

REACTIONS (1)
  - Injection site haemorrhage [Recovered/Resolved]
